FAERS Safety Report 5117445-7 (Version None)
Quarter: 2006Q3

REPORT INFORMATION
  Report Type: 
  Country: None (occurrence: None)
  Receive Date: 20060929
  Receipt Date: 20060922
  Transmission Date: 20061208
  Serious: Yes (Hospitalization)
  Sender: FDA-Public Use
  Company Number: US-BRISTOL-MYERS SQUIBB COMPANY-13519178

PATIENT
  Sex: Female

DRUGS (1)
  1. IFEX [Suspect]
     Indication: SARCOMA

REACTIONS (3)
  - ELECTROLYTE IMBALANCE [None]
  - HYPOKALAEMIA [None]
  - NEPHROPATHY TOXIC [None]
